FAERS Safety Report 23561861 (Version 2)
Quarter: 2024Q2

REPORT INFORMATION
  Report Type: Spontaneous
  Country: US (occurrence: US)
  Receive Date: 20240225
  Receipt Date: 20240422
  Transmission Date: 20240716
  Serious: Yes (Other)
  Sender: FDA-Public Use
  Company Number: US-BRISTOL-MYERS SQUIBB COMPANY-2024-022153

PATIENT
  Age: 44 Year
  Sex: Female

DRUGS (2)
  1. SPRYCEL [Suspect]
     Active Substance: DASATINIB
     Indication: Chronic myeloid leukaemia
     Dosage: ONCE A DAY
     Route: 048
     Dates: start: 202101
  2. SPRYCEL [Suspect]
     Active Substance: DASATINIB
     Dosage: ONCE A DAY
     Route: 048
     Dates: start: 202104

REACTIONS (3)
  - Influenza [Unknown]
  - Pulmonary oedema [Unknown]
  - Drug ineffective [Unknown]
